FAERS Safety Report 9934773 (Version 2)
Quarter: 2014Q1

REPORT INFORMATION
  Report Type: Report from Study
  Country: AU (occurrence: AU)
  Receive Date: 20140228
  Receipt Date: 20140324
  Transmission Date: 20141002
  Serious: Yes (Other)
  Sender: FDA-Public Use
  Company Number: AU-BRISTOL-MYERS SQUIBB COMPANY-20242608

PATIENT
  Age: 57 Year
  Sex: Female

DRUGS (8)
  1. ORENCIA [Suspect]
     Indication: RHEUMATOID ARTHRITIS
     Route: 042
     Dates: start: 20120515
  2. FLUDROCORTISONE [Concomitant]
  3. HYDROCORTISONE [Concomitant]
  4. NEXIUM [Concomitant]
  5. SUDAFED [Concomitant]
  6. CELEBREX [Concomitant]
  7. STEMETIL [Concomitant]
  8. DIAZEPAM [Concomitant]

REACTIONS (4)
  - Anxiety [Unknown]
  - Depression [Unknown]
  - Insomnia [Unknown]
  - Panic attack [Unknown]
